FAERS Safety Report 19362941 (Version 3)
Quarter: 2021Q2

REPORT INFORMATION
  Report Type: Report from Study
  Country: None (occurrence: US)
  Receive Date: 20210603
  Receipt Date: 20210630
  Transmission Date: 20210717
  Serious: Yes (Hospitalization, Other)
  Sender: FDA-Public Use
  Company Number: US-ABBVIE-21K-163-3931125-00

PATIENT
  Age: 61 Year
  Sex: Male

DRUGS (8)
  1. LIPITOR [Concomitant]
     Active Substance: ATORVASTATIN CALCIUM
     Indication: BLOOD CHOLESTEROL
  2. HUMIRA [Suspect]
     Active Substance: ADALIMUMAB
     Indication: CROHN^S DISEASE
     Route: 058
     Dates: start: 2008
  3. COVID?19 VACCINE [Concomitant]
     Indication: COVID-19 IMMUNISATION
     Dosage: PFIZER
     Route: 030
     Dates: start: 20210324, end: 20210324
  4. CALCIUM [Concomitant]
     Active Substance: CALCIUM
     Indication: PRODUCT USED FOR UNKNOWN INDICATION
  5. COVID?19 VACCINE [Concomitant]
     Dosage: PFIZER
     Route: 030
     Dates: start: 20210414, end: 20210414
  6. VASOTEC [Concomitant]
     Active Substance: ENALAPRIL MALEATE
     Indication: CARDIAC DISORDER
  7. VITAMIN D [Concomitant]
     Active Substance: VITAMIN D NOS
     Indication: PRODUCT USED FOR UNKNOWN INDICATION
  8. COREG [Concomitant]
     Active Substance: CARVEDILOL
     Indication: CARDIAC DISORDER

REACTIONS (6)
  - Venous occlusion [Recovered/Resolved]
  - Myocardial infarction [Recovered/Resolved]
  - Osteoarthritis [Not Recovered/Not Resolved]
  - Cataract [Not Recovered/Not Resolved]
  - Bone loss [Unknown]
  - Macular degeneration [Recovered/Resolved]

NARRATIVE: CASE EVENT DATE: 201710
